FAERS Safety Report 5601111-5 (Version None)
Quarter: 2008Q1

REPORT INFORMATION
  Report Type: 
  Country: None (occurrence: None)
  Receive Date: 20080124
  Receipt Date: 20080111
  Transmission Date: 20080703
  Serious: Yes (Hospitalization, Other)
  Sender: FDA-Public Use
  Company Number: US-AMGEN-STX252196

PATIENT
  Sex: Female

DRUGS (13)
  1. ENBREL [Suspect]
     Indication: PSORIATIC ARTHROPATHY
     Route: 058
     Dates: start: 20050101
  2. ENBREL [Suspect]
     Indication: OSTEOARTHRITIS
  3. PREMARIN [Concomitant]
  4. AMBIEN [Concomitant]
  5. TOPROL-XL [Concomitant]
  6. CELEBREX [Concomitant]
  7. PROPOXYPHENE HYDROCHLORIDE [Concomitant]
  8. CEPHALEXIN [Concomitant]
  9. ALBUTEROL [Concomitant]
  10. FLONASE [Concomitant]
  11. QUININE SULFATE [Concomitant]
  12. CALCIPOTRIENE [Concomitant]
  13. BETAMETHASONE DIPROPIONATE [Concomitant]

REACTIONS (10)
  - ALOPECIA [None]
  - ENCHONDROMATOSIS [None]
  - INJECTION SITE ERYTHEMA [None]
  - INJECTION SITE PAIN [None]
  - LIPOMA [None]
  - OSTEOARTHRITIS [None]
  - PSORIASIS [None]
  - PSORIATIC ARTHROPATHY [None]
  - RASH PAPULAR [None]
  - TYPE 1 DIABETES MELLITUS [None]
